FAERS Safety Report 8937498 (Version 1)
Quarter: 2012Q4

REPORT INFORMATION
  Report Type: 
  Country: CO (occurrence: CO)
  Receive Date: 20121130
  Receipt Date: 20121130
  Transmission Date: 20130627
  Serious: Yes (Other)
  Sender: FDA-Public Use
  Company Number: CO-PFIZER INC-2012301890

PATIENT
  Age: 61 Year
  Sex: Male

DRUGS (2)
  1. LIPITOR [Suspect]
     Indication: HYPERCHOLESTEROLEMIA
     Dosage: 10 mg, 1x/day
     Route: 048
     Dates: start: 2011
  2. GALVUS MET [Concomitant]
     Indication: DIABETES
     Dosage: 2 tablets at 850mg + 50mg, 1x/day
     Route: 048
     Dates: start: 2011

REACTIONS (1)
  - Hernia [Recovering/Resolving]
